FAERS Safety Report 6527678-0 (Version None)
Quarter: 2010Q1

REPORT INFORMATION
  Report Type: 
  Country: None (occurrence: None)
  Receive Date: 20100105
  Receipt Date: 20091225
  Transmission Date: 20100710
  Serious: Yes (Life-Threatening, Hospitalization)
  Sender: FDA-Public Use
  Company Number: JP-AMGEN-US383555

PATIENT
  Sex: Male
  Weight: 58 kg

DRUGS (14)
  1. ENBREL [Suspect]
     Indication: RHEUMATOID ARTHRITIS
     Route: 058
     Dates: start: 20081010, end: 20091104
  2. RHEUMATREX [Suspect]
     Indication: RHEUMATOID ARTHRITIS
     Route: 048
  3. METHOTREXATE [Suspect]
     Indication: RHEUMATOID ARTHRITIS
     Route: 048
  4. NEO UMOR [Concomitant]
     Indication: PROPHYLAXIS
     Route: 048
  5. TAGAMET [Concomitant]
     Indication: PROPHYLAXIS
     Route: 048
  6. TAMIFLU [Concomitant]
     Dosage: UNSPECIFIED
     Route: 048
  7. AMLODIPINE BESYLATE [Concomitant]
     Indication: POSTINFARCTION ANGINA
     Route: 048
  8. WARFARIN POTASSIUM [Concomitant]
     Indication: POSTINFARCTION ANGINA
     Route: 048
  9. LIVALO [Concomitant]
     Indication: HYPERLIPIDAEMIA
     Route: 048
  10. GENINAX [Concomitant]
     Indication: BRONCHITIS
     Route: 048
  11. CALONAL [Concomitant]
     Dosage: UNSPECIFIED
     Route: 048
  12. ISCOTIN [Concomitant]
     Indication: ANTIBIOTIC PROPHYLAXIS
     Route: 048
  13. BENET [Concomitant]
     Indication: OSTEOPOROSIS
     Route: 048
  14. INFLUENZA VACCINE [Concomitant]
     Route: 065
     Dates: start: 20091104, end: 20091104

REACTIONS (1)
  - PNEUMOCYSTIS JIROVECI PNEUMONIA [None]
